FAERS Safety Report 5777198-6 (Version None)
Quarter: 2008Q2

REPORT INFORMATION
  Report Type: 
  Country: None (occurrence: None)
  Receive Date: 20080618
  Receipt Date: 20080606
  Transmission Date: 20081010
  Serious: Yes (Hospitalization, Other)
  Sender: FDA-Public Use
  Company Number: HU-ELI_LILLY_AND_COMPANY-HU200806001464

PATIENT
  Age: 63 Year
  Sex: Male

DRUGS (7)
  1. HUMULIN R [Suspect]
     Indication: DIABETES MELLITUS
     Dosage: 30 IU, EACH MORNING
     Route: 058
     Dates: start: 19980101
  2. HUMULIN R [Suspect]
     Dosage: 28 IU, DAILY (1/D)
     Route: 058
     Dates: start: 19980101
  3. HUMULIN R [Suspect]
     Dosage: 30 IU, EACH EVENING
     Route: 058
     Dates: start: 19980101
  4. HUMULIN N [Suspect]
     Indication: DIABETES MELLITUS
     Dates: start: 19980101, end: 20080101
  5. CREON [Concomitant]
     Indication: DYSPEPSIA
  6. LEVEMIR [Concomitant]
     Indication: DIABETES MELLITUS
     Dosage: 14 IU, EACH MORNING
     Dates: start: 20080101
  7. LEVEMIR [Concomitant]
     Dosage: 44 IU, EACH EVENING
     Dates: start: 20080101

REACTIONS (3)
  - HUNGER [None]
  - METASTASES TO LUNG [None]
  - MYOCARDIAL INFARCTION [None]
